FAERS Safety Report 7227358 (Version 3)
Quarter: 2013Q1

REPORT INFORMATION
  Report Type: Spontaneous
  Country: None (occurrence: None)
  Receive Date: 20091207
  Receipt Date: 20130319
  Transmission Date: 20140127
  Serious: Yes (Hospitalization, Other)
  Sender: FDA-Public Use
  Company Number: AUR-APL-2009-01353

PATIENT
  Age: 16 Year
  Sex: Male

DRUGS (14)
  1. RISPERIDONE [Suspect]
     Indication: TOURETTE^S DISORDER
     Dosage: (0.5 MG, 1 D), UNKNOWN     (5 MG), UNKNOWN
  2. FLUOXETINE [Suspect]
     Route: 048
  3. TOPIRAMATE [Suspect]
     Dosage: (50 MG, 1 IN 12 HR)
  4. ZOLPIDEM [Suspect]
     Dosage: (10 MG, 1 IN 12 HR)
  5. TETRABENAZINE [Suspect]
  6. HALOPERIDOL [Suspect]
     Indication: TOURETTE^S DISORDER
  7. OXCARBAZEPINE [Suspect]
  8. LEVETIRACETAM [Suspect]
  9. PIMOZIDE [Suspect]
     Dosage: STOPPED?
  10. ZIPRASIDONE HYDROCHLORIDE [Suspect]
  11. ARIPIPRAZOLE [Suspect]
     Dosage: (10 MG),
  12. MIDAZOLAM [Suspect]
     Route: 042
  13. BENZATROPINE [Suspect]
     Dosage: (0.5 MG, 2 IN 1 D)
  14. FLUPHENAZINE [Suspect]

REACTIONS (14)
  - WEIGHT INCREASED [None]
  - BLOOD PROLACTIN INCREASED [None]
  - DEPRESSION [None]
  - SUICIDAL IDEATION [None]
  - MUSCULOSKELETAL STIFFNESS [None]
  - ELECTROCARDIOGRAM QT PROLONGED [None]
  - DRUG INTERACTION [None]
  - LETHARGY [None]
  - ANXIETY [None]
  - MOOD ALTERED [None]
  - GALACTORRHOEA [None]
  - LOSS OF CONSCIOUSNESS [None]
  - TIC [None]
  - CONDITION AGGRAVATED [None]
